FAERS Safety Report 13701694 (Version 2)
Quarter: 2017Q3

REPORT INFORMATION
  Report Type: Spontaneous
  Country: US (occurrence: US)
  Receive Date: 20170629
  Receipt Date: 20170703
  Transmission Date: 20171127
  Serious: No
  Sender: FDA-Public Use
  Company Number: US-SAGENTPRD-2017-US-000033

PATIENT
  Age: 22 Year
  Sex: Male

DRUGS (1)
  1. IBANDRONATE [Suspect]
     Active Substance: IBANDRONATE SODIUM
     Dosage: 2 MG
     Route: 042
     Dates: start: 20170621, end: 20170621

REACTIONS (3)
  - Infusion site extravasation [Recovering/Resolving]
  - Administration site discolouration [Recovering/Resolving]
  - Swelling [Recovering/Resolving]

NARRATIVE: CASE EVENT DATE: 20170621
